FAERS Safety Report 10240947 (Version 1)
Quarter: 2014Q2

REPORT INFORMATION
  Report Type: Spontaneous
  Country: CA (occurrence: CA)
  Receive Date: 20140617
  Receipt Date: 20140617
  Transmission Date: 20141212
  Serious: Yes (Other)
  Sender: FDA-Public Use
  Company Number: CA-ELI_LILLY_AND_COMPANY-CA201406003444

PATIENT
  Sex: Male

DRUGS (1)
  1. AXIRON [Suspect]
     Indication: BLOOD TESTOSTERONE DECREASED
     Dosage: 60 MG, UNKNOWN
     Route: 065

REACTIONS (3)
  - Pituitary tumour [Unknown]
  - Hypothalamo-pituitary disorder [Unknown]
  - Blood testosterone decreased [Unknown]
